FAERS Safety Report 4331068-9 (Version None)
Quarter: 2004Q1

REPORT INFORMATION
  Report Type: 
  Country: None (occurrence: None)
  Receive Date: 20040331
  Receipt Date: 20040318
  Transmission Date: 20041129
  Serious: Yes (Hospitalization)
  Sender: FDA-Public Use
  Company Number: 2004009466

PATIENT
  Age: 72 Year
  Sex: Male
  Weight: 97 kg

DRUGS (16)
  1. TIKOSYN [Suspect]
     Indication: ATRIAL FIBRILLATION
     Dosage: 500 MCG (BID), ORAL
     Route: 048
     Dates: start: 20021101, end: 20031210
  2. LISINOPRIL [Suspect]
     Indication: HYPERTENSION
     Dosage: 40 MG (DAILY), ORAL
     Route: 048
     Dates: start: 19950101
  3. INSULIN GLARGINE (INSULIN GLARGINE) [Concomitant]
  4. INSULIN LISPRO (INSULIN LISPRO) [Concomitant]
  5. POTASSIUM CHLORIDE [Concomitant]
  6. LOTRISONE [Concomitant]
  7. LANSOPRAZOLE [Concomitant]
  8. FUROSEMIDE [Concomitant]
  9. LOPERAMIDE HCL [Concomitant]
  10. NIZATIDINE [Concomitant]
  11. BENZONATATE (BENZONATATE) [Concomitant]
  12. PROCHLORPERAZINE [Concomitant]
  13. ATORVASTATIN (ATORVASTATIN) [Concomitant]
  14. LEVOTHYROXINE SODIUM [Concomitant]
  15. METOPROLOL (METOPROLOL) [Concomitant]
  16. POTASSIUM (POTASSIUM) [Concomitant]

REACTIONS (23)
  - ACIDOSIS [None]
  - ANION GAP DECREASED [None]
  - ARRHYTHMIA [None]
  - ATRIAL FIBRILLATION [None]
  - ATRIOVENTRICULAR BLOCK FIRST DEGREE [None]
  - BLOOD BICARBONATE DECREASED [None]
  - BLOOD CHLORIDE INCREASED [None]
  - BLOOD GLUCOSE INCREASED [None]
  - BLOOD LACTIC ACID DECREASED [None]
  - BLOOD MAGNESIUM INCREASED [None]
  - BLOOD SODIUM DECREASED [None]
  - BUNDLE BRANCH BLOCK RIGHT [None]
  - DEHYDRATION [None]
  - GRANULOCYTE COUNT INCREASED [None]
  - HYPERKALAEMIA [None]
  - NAUSEA [None]
  - OXYGEN SATURATION DECREASED [None]
  - PCO2 DECREASED [None]
  - RED BLOOD CELL COUNT DECREASED [None]
  - RENAL FAILURE CHRONIC [None]
  - SINUS BRADYCARDIA [None]
  - VOMITING [None]
  - WHITE BLOOD CELL COUNT INCREASED [None]
